FAERS Safety Report 4740489-1 (Version None)
Quarter: 2005Q3

REPORT INFORMATION
  Report Type: 
  Country: None (occurrence: None)
  Receive Date: 20050805
  Receipt Date: 20050722
  Transmission Date: 20060218
  Serious: Yes (Hospitalization)
  Sender: FDA-Public Use
  Company Number: CLOF-10028

PATIENT
  Age: 12 Month
  Sex: Male

DRUGS (4)
  1. CLOFARABINE [Suspect]
     Indication: ACUTE LYMPHOCYTIC LEUKAEMIA
     Dosage: 24.5 MG QD X 5 IV
     Route: 042
     Dates: start: 20050208, end: 20050212
  2. CLOFARABINE [Concomitant]
     Indication: ACUTE LYMPHOCYTIC LEUKAEMIA
     Dosage: 26.5 MG QD X 5 IV
     Route: 042
     Dates: start: 20050228, end: 20050304
  3. METOCLOPRAMIDE [Concomitant]
  4. SEPTRIN [Concomitant]

REACTIONS (9)
  - CLOSTRIDIAL INFECTION [None]
  - CULTURE STOOL POSITIVE [None]
  - DIARRHOEA [None]
  - FEBRILE NEUTROPENIA [None]
  - HAEMOGLOBIN DECREASED [None]
  - LISTLESS [None]
  - PLATELET COUNT DECREASED [None]
  - RASH ERYTHEMATOUS [None]
  - VOMITING [None]
